FAERS Safety Report 4314502-X (Version None)
Quarter: 2004Q1

REPORT INFORMATION
  Report Type: 
  Country: None (occurrence: None)
  Receive Date: 20040308
  Receipt Date: 20040224
  Transmission Date: 20041129
  Serious: Yes (Death, Hospitalization)
  Sender: FDA-Public Use
  Company Number: 04H-163-0251384-00

PATIENT
  Age: 58 Year
  Sex: Male

DRUGS (2)
  1. HEPARIN SODIUM [Suspect]
     Indication: ANTICOAGULANT THERAPY
     Dosage: INTRAVENOUS
     Route: 042
  2. WARFARIN SODIUM [Suspect]
     Indication: ANTICOAGULANT THERAPY
     Dosage: 10 MG, 1 IN 1 D, PER ORAL
     Route: 048

REACTIONS (3)
  - HEPARIN-INDUCED THROMBOCYTOPENIA [None]
  - SEPSIS [None]
  - SKIN NECROSIS [None]
